FAERS Safety Report 14240685 (Version 1)
Quarter: 2017Q4

REPORT INFORMATION
  Report Type: Spontaneous
  Country: NO (occurrence: NO)
  Receive Date: 20171130
  Receipt Date: 20171130
  Transmission Date: 20180321
  Serious: Yes (Life-Threatening, Hospitalization)
  Sender: FDA-Public Use
  Company Number: NO-B.I. PHARMACEUTICALS,INC./RIDGEFIELD-2017-12-000032

PATIENT
  Age: 59 Year
  Sex: Male
  Weight: 140 kg

DRUGS (6)
  1. SYNJARDY [Suspect]
     Active Substance: EMPAGLIFLOZIN\METFORMIN HYDROCHLORIDE
     Indication: TYPE 2 DIABETES MELLITUS
     Dosage: ONE UNIT DOSE: 12,5 MG EMPAGLIFLOZIN / 1000 MG METFORMIN
     Route: 048
     Dates: start: 20171004, end: 20171018
  2. METOPROLOL SANDOZ [Concomitant]
     Active Substance: METOPROLOL
     Indication: ATRIAL FIBRILLATION
     Dosage: 200 MG
     Route: 048
  3. SIMVASTATIN SANDOZ [Concomitant]
     Active Substance: SIMVASTATIN
     Indication: PRODUCT USED FOR UNKNOWN INDICATION
     Dosage: SIMVASTATIN: 10MG
     Route: 048
  4. ALLOPUR [Concomitant]
     Active Substance: ALLOPURINOL
     Indication: GOUT
     Dosage: 100 MG
     Route: 048
  5. AMLODIPIN SANDOZ [Concomitant]
     Indication: HYPERTENSION
     Dosage: 5MG
     Route: 048
  6. ENALAPRIL SANDOZ [Concomitant]
     Active Substance: ENALAPRIL
     Indication: PRODUCT USED FOR UNKNOWN INDICATION
     Dosage: 20 MG
     Route: 048

REACTIONS (1)
  - Diabetic ketoacidosis [Recovered/Resolved]

NARRATIVE: CASE EVENT DATE: 20171018
